FAERS Safety Report 24958571 (Version 1)
Quarter: 2025Q1

REPORT INFORMATION
  Report Type: Other
  Country: BR (occurrence: BR)
  Receive Date: 20250212
  Receipt Date: 20250212
  Transmission Date: 20250409
  Serious: Yes (Death, Hospitalization)
  Sender: ESJAY PHARMA
  Company Number: BR-ESJAY PHARMA-000110

PATIENT
  Age: 89 Year
  Sex: Male

DRUGS (4)
  1. FUROSEMIDE [Suspect]
     Active Substance: FUROSEMIDE
     Indication: Rhabdomyolysis
  2. CEFTRIAXONE [Concomitant]
     Active Substance: CEFTRIAXONE
     Indication: Rhabdomyolysis
  3. SODIUM CHLORIDE [Concomitant]
     Active Substance: SODIUM CHLORIDE
     Indication: Rhabdomyolysis
  4. TRAMADOL [Concomitant]
     Active Substance: TRAMADOL
     Indication: Rhabdomyolysis

REACTIONS (1)
  - Drug ineffective for unapproved indication [Fatal]
